FAERS Safety Report 5410160-1 (Version None)
Quarter: 2007Q3

REPORT INFORMATION
  Report Type: 
  Country: None (occurrence: None)
  Receive Date: 20070809
  Receipt Date: 20070731
  Transmission Date: 20080115
  Serious: Yes (Other)
  Sender: FDA-Public Use
  Company Number: DE-ABBOTT-07P-062-0376266-00

PATIENT
  Age: 62 Year
  Weight: 91 kg

DRUGS (10)
  1. SEVOFLURANE [Suspect]
     Indication: MAINTENANCE OF ANAESTHESIA
     Dosage: NOT REPORTED
  2. PRILOCAINE [Suspect]
     Indication: DRUG USE FOR UNKNOWN INDICATION
     Dosage: 40 ML, 1%
  3. BUPIVACAINE [Suspect]
     Indication: DRUG USE FOR UNKNOWN INDICATION
     Dosage: 10 ML, 0.5%
  4. THIOPENTAL SODIUM [Suspect]
     Indication: INDUCTION OF ANAESTHESIA
     Dosage: NOT REPORTED
  5. ALFENTANIL [Suspect]
     Indication: INDUCTION OF ANAESTHESIA
     Dosage: NOT REPORTED
  6. ROCURONIUM BROMIDE [Suspect]
     Indication: INDUCTION OF ANAESTHESIA
     Dosage: NOT REPORTED
  7. ATENOLOL [Concomitant]
     Indication: DRUG USE FOR UNKNOWN INDICATION
  8. ACARBOSE [Concomitant]
     Indication: DRUG USE FOR UNKNOWN INDICATION
  9. TAMSULOSIN HCL [Concomitant]
     Indication: BENIGN PROSTATIC HYPERPLASIA
  10. VASOPRESSORS [Concomitant]
     Indication: BLOOD PRESSURE
     Dosage: NOT REPORTED

REACTIONS (4)
  - BLOOD PRESSURE SYSTOLIC DECREASED [None]
  - DRUG TOXICITY [None]
  - PULMONARY OEDEMA [None]
  - RESPIRATORY FAILURE [None]
